FAERS Safety Report 8876804 (Version 1)
Quarter: 2012Q4

REPORT INFORMATION
  Report Type: 
  Country: US (occurrence: US)
  Receive Date: 20121023
  Receipt Date: 20121023
  Transmission Date: 20130627
  Serious: No
  Sender: FDA-Public Use
  Company Number: US-AMGEN-USASP2012053145

PATIENT
  Age: 76 Year
  Sex: Female

DRUGS (10)
  1. ENBREL [Suspect]
     Indication: PRODUCT USED FOR UNKNOWN INDICATION
     Dosage: 50 mg, qwk
     Route: 058
  2. PANTOPRAZOLE [Concomitant]
     Dosage: 40 mg, UNK
  3. XANAX [Concomitant]
     Dosage: 0.25 mg, UNK
  4. XALATAN [Concomitant]
     Dosage: 0.005 %, UNK
  5. PREMARIN [Concomitant]
     Dosage: 0.3 mg, UNK
  6. SYNTHROID [Concomitant]
     Dosage: 112 mug, UNK
  7. SIMVASTATIN [Concomitant]
     Dosage: 10 mg, UNK
  8. TOPROL [Concomitant]
     Dosage: 100 mg, UNK
  9. ISTALOL [Concomitant]
     Dosage: 0.5 %, UNK
  10. PANTOPRAZOLE                       /01263204/ [Concomitant]
     Dosage: 40 mg, UNK

REACTIONS (1)
  - Diarrhoea [Unknown]
